FAERS Safety Report 23438926 (Version 1)
Quarter: 2024Q1

REPORT INFORMATION
  Report Type: Spontaneous
  Country: US (occurrence: None)
  Receive Date: 20240124
  Receipt Date: 20240124
  Transmission Date: 20240410
  Serious: Yes (Hospitalization)
  Sender: FDA-Public Use
  Company Number: None

PATIENT
  Age: 81 Year
  Sex: Male
  Weight: 79.65 kg

DRUGS (1)
  1. CALQUENCE [Suspect]
     Active Substance: ACALABRUTINIB
     Indication: Chronic lymphocytic leukaemia
     Dosage: FREQUENCY : TWICE A DAY;?
     Route: 048
     Dates: start: 20231214, end: 20231224

REACTIONS (4)
  - Gastrointestinal haemorrhage [None]
  - Arteriovenous malformation [None]
  - Peripheral vascular haematoma [None]
  - Therapy change [None]

NARRATIVE: CASE EVENT DATE: 20231224
